FAERS Safety Report 5664955-X (Version None)
Quarter: 2008Q1

REPORT INFORMATION
  Report Type: 
  Country: None (occurrence: None)
  Receive Date: 20080314
  Receipt Date: 20080304
  Transmission Date: 20080703
  Serious: Yes (Hospitalization, Other)
  Sender: FDA-Public Use
  Company Number: US-PFIZER INC-2008013656

PATIENT
  Sex: Female

DRUGS (1)
  1. DILANTIN [Suspect]
     Indication: TRAUMATIC BRAIN INJURY

REACTIONS (5)
  - BURNING SENSATION [None]
  - CONVULSION [None]
  - DYSPHASIA [None]
  - FEELING ABNORMAL [None]
  - SPEECH DISORDER [None]
